FAERS Safety Report 6431822-3 (Version None)
Quarter: 2009Q4

REPORT INFORMATION
  Report Type: 
  Country: None (occurrence: None)
  Receive Date: 20091104
  Receipt Date: 20091022
  Transmission Date: 20100525
  Serious: Yes (Hospitalization)
  Sender: FDA-Public Use
  Company Number: APP200900671

PATIENT
  Age: 53 Year
  Sex: Male

DRUGS (7)
  1. FLUOROURACIL INJ [Suspect]
     Indication: COLON CANCER
     Dosage: 400 MG/M2, INTRAVENOUS BOLUS, 2400 MG/M2, INTRAVENOUS BOLUS
     Route: 040
  2. OXALIPLATIN [Concomitant]
  3. LEUCOVORIN CALCIUM [Concomitant]
  4. AMLODIPINE [Concomitant]
  5. QUINAPRIL HCL [Concomitant]
  6. HYDROCHLOROTHIAZIDE [Concomitant]
  7. ATORVASTATIN CALCIUM [Concomitant]

REACTIONS (14)
  - ABNORMAL BEHAVIOUR [None]
  - AGITATION [None]
  - BLOOD CREATININE INCREASED [None]
  - BLOOD UREA INCREASED [None]
  - COMA [None]
  - CONFUSIONAL STATE [None]
  - ENCEPHALOPATHY [None]
  - FATIGUE [None]
  - GRAND MAL CONVULSION [None]
  - LEUKOCYTOSIS [None]
  - METABOLIC ACIDOSIS [None]
  - MUSCLE TWITCHING [None]
  - MUSCULAR WEAKNESS [None]
  - TREMOR [None]
